FAERS Safety Report 4666496-5 (Version None)
Quarter: 2005Q2

REPORT INFORMATION
  Report Type: 
  Country: None (occurrence: None)
  Receive Date: 20050518
  Receipt Date: 20050509
  Transmission Date: 20051028
  Serious: Yes (Hospitalization)
  Sender: FDA-Public Use
  Company Number: DE-2005-007197

PATIENT
  Age: 33 Year
  Sex: Female

DRUGS (1)
  1. MAGNEVIST [Suspect]
     Dates: start: 20050509, end: 20050509

REACTIONS (3)
  - CARDIOVASCULAR DISORDER [None]
  - PARAESTHESIA [None]
  - VOMITING [None]
